FAERS Safety Report 17981288 (Version 1)
Quarter: 2020Q3

REPORT INFORMATION
  Report Type: Spontaneous
  Country: GB (occurrence: GB)
  Receive Date: 20200705
  Receipt Date: 20200705
  Transmission Date: 20201103
  Serious: Yes (Disabling, Other)
  Sender: FDA-Public Use
  Company Number: NVSC2020GB185455

PATIENT
  Age: 63 Year
  Sex: Female
  Weight: 99.66 kg

DRUGS (1)
  1. GABAPENTIN. [Suspect]
     Active Substance: GABAPENTIN
     Indication: MULTIPLE SCLEROSIS
     Dosage: 180 MG (6 X 30MG PER DAY)
     Route: 048
     Dates: start: 2019

REACTIONS (3)
  - Balance disorder [Not Recovered/Not Resolved]
  - Abdominal distension [Not Recovered/Not Resolved]
  - Multiple sclerosis [Not Recovered/Not Resolved]
